FAERS Safety Report 5336388-7 (Version None)
Quarter: 2007Q2

REPORT INFORMATION
  Report Type: 
  Country: None (occurrence: None)
  Receive Date: 20070523
  Receipt Date: 20070511
  Transmission Date: 20071010
  Serious: Yes (Hospitalization)
  Sender: FDA-Public Use
  Company Number: 2007BI006288

PATIENT
  Age: 64 Year
  Sex: Male
  Weight: 58.514 kg

DRUGS (19)
  1. AVONEX [Suspect]
     Indication: MULTIPLE SCLEROSIS
     Dosage: 30 UG;QW;IM
     Route: 030
     Dates: start: 19980101
  2. AVONEX [Suspect]
     Indication: MULTIPLE SCLEROSIS
     Dosage: 30 UG;QW;IM
     Route: 030
     Dates: start: 20060101
  3. DIAZEPAM [Concomitant]
  4. PREDNISONE TAB [Concomitant]
  5. ZANAFLEX [Concomitant]
  6. BACLOFEN [Concomitant]
  7. VITAMIN CAP [Concomitant]
  8. ASCORBIC ACID [Concomitant]
  9. CALCIUM CARBONATE [Concomitant]
  10. VITAMIN D [Concomitant]
  11. LIPITOR [Concomitant]
  12. K-DUR 10 [Concomitant]
  13. FOSAMAX [Concomitant]
  14. IRON [Concomitant]
  15. NEURONTIN [Concomitant]
  16. NEXIUM [Concomitant]
  17. PLAVIX [Concomitant]
  18. ASPIRIN [Concomitant]
  19. PROVIGIL [Concomitant]

REACTIONS (7)
  - ABASIA [None]
  - FALL [None]
  - PERIPHERAL CIRCULATORY FAILURE [None]
  - SKIN ULCER [None]
  - STAPHYLOCOCCAL INFECTION [None]
  - TREMOR [None]
  - VARICOSE VEIN OPERATION [None]
